FAERS Safety Report 6821152-X (Version None)
Quarter: 2010Q3

REPORT INFORMATION
  Report Type: 
  Country: None (occurrence: None)
  Receive Date: 20100707
  Receipt Date: 20080215
  Transmission Date: 20110219
  Serious: No
  Sender: FDA-Public Use
  Company Number: US-PFIZER INC-2008015163

PATIENT
  Sex: Female
  Weight: 57.61 kg

DRUGS (5)
  1. ZOLOFT [Suspect]
     Indication: OFFICE VISIT
     Route: 048
  2. LOTREL [Concomitant]
  3. PREMARIN [Concomitant]
  4. TRAMADOL [Concomitant]
  5. SYNTHROID [Concomitant]

REACTIONS (2)
  - APPETITE DISORDER [None]
  - POLLAKIURIA [None]
